FAERS Safety Report 20743910 (Version 7)
Quarter: 2024Q3

REPORT INFORMATION
  Report Type: Report from Study
  Country: JP (occurrence: JP)
  Receive Date: 20220425
  Receipt Date: 20240823
  Transmission Date: 20241017
  Serious: Yes (Hospitalization, Other)
  Sender: ROCHE
  Company Number: JP-CHUGAI-2022014315

PATIENT
  Age: 73 Year
  Sex: Female
  Weight: 53.0 kg

DRUGS (7)
  1. SATRALIZUMAB [Suspect]
     Active Substance: SATRALIZUMAB
     Indication: Neuromyelitis optica spectrum disorder
     Dosage: 120 MILLIGRAM, ONCE/4WEEKS
     Route: 058
     Dates: start: 20210310, end: 2021
  2. SATRALIZUMAB [Suspect]
     Active Substance: SATRALIZUMAB
     Dosage: 120 MILLIGRAM, ONCE/4WEEKS
     Route: 058
     Dates: start: 20210421, end: 20211206
  3. SATRALIZUMAB [Suspect]
     Active Substance: SATRALIZUMAB
     Route: 058
     Dates: start: 20220112
  4. TACROLIMUS [Suspect]
     Active Substance: TACROLIMUS
     Indication: Neuromyelitis optica spectrum disorder
     Dosage: UNK
     Route: 065
  5. TASIGNA [Concomitant]
     Active Substance: NILOTINIB
     Indication: Chronic myeloid leukaemia
  6. EVENITY [Concomitant]
     Active Substance: ROMOSOZUMAB-AQQG
     Dosage: UNK
  7. IMATINIB [Concomitant]
     Active Substance: IMATINIB
     Indication: Chronic leukaemia
     Dosage: UNK

REACTIONS (10)
  - Cellulitis [Recovered/Resolved]
  - Hepatic function abnormal [Recovering/Resolving]
  - Renal disorder [Not Recovered/Not Resolved]
  - Amylase increased [Not Recovered/Not Resolved]
  - Diabetes mellitus [Unknown]
  - Gamma-glutamyltransferase increased [Not Recovered/Not Resolved]
  - Blood triglycerides increased [Not Recovered/Not Resolved]
  - Dyslipidaemia [Recovering/Resolving]
  - Lymphoedema [Not Recovered/Not Resolved]
  - Fracture [Recovered/Resolved]

NARRATIVE: CASE EVENT DATE: 20211108
